FAERS Safety Report 14675971 (Version 1)
Quarter: 2018Q1

REPORT INFORMATION
  Report Type: Report from Study
  Country: US (occurrence: US)
  Receive Date: 20180323
  Receipt Date: 20180323
  Transmission Date: 20180509
  Serious: Yes (Other)
  Sender: FDA-Public Use
  Company Number: US-TAKEDA-2018TUS006704

PATIENT
  Age: 43 Year
  Sex: Female

DRUGS (1)
  1. PONATINIB [Suspect]
     Active Substance: PONATINIB
     Indication: CHRONIC MYELOID LEUKAEMIA
     Dosage: 15 MG, QD
     Route: 048
     Dates: start: 201703, end: 201710

REACTIONS (13)
  - Acute kidney injury [Unknown]
  - Febrile neutropenia [Unknown]
  - Pleural effusion [Unknown]
  - Pneumonia fungal [Unknown]
  - Axillary vein thrombosis [Unknown]
  - Fluid overload [Unknown]
  - Demodicidosis [Unknown]
  - Pain [Unknown]
  - Thrombocytopenia [Unknown]
  - Respiratory failure [Unknown]
  - Fungaemia [Unknown]
  - Thrombophlebitis superficial [Unknown]
  - Migraine [Unknown]

NARRATIVE: CASE EVENT DATE: 20170314
